FAERS Safety Report 10067663 (Version 1)
Quarter: 2014Q2

REPORT INFORMATION
  Report Type: Spontaneous
  Country: US (occurrence: None)
  Receive Date: 20140408
  Receipt Date: 20140408
  Transmission Date: 20141212
  Serious: Yes (Hospitalization)
  Sender: FDA-Public Use
  Company Number: None

PATIENT
  Age: 71 Year
  Sex: Male
  Weight: 133 kg

DRUGS (1)
  1. COLCHICINE [Suspect]
     Indication: GOUT
     Route: 048
     Dates: start: 20140206, end: 20140303

REACTIONS (2)
  - Diarrhoea [None]
  - Renal failure acute [None]
